FAERS Safety Report 7120549-0 (Version None)
Quarter: 2010Q4

REPORT INFORMATION
  Report Type: 
  Country: None (occurrence: None)
  Receive Date: 20101124
  Receipt Date: 20101118
  Transmission Date: 20110411
  Serious: Yes (Other)
  Sender: FDA-Public Use
  Company Number: US-PFIZER INC-2010151325

PATIENT
  Age: 49 Year
  Sex: Male
  Weight: 97.506 kg

DRUGS (6)
  1. CHANTIX [Suspect]
     Indication: SMOKING CESSATION THERAPY
     Dosage: UNK
     Route: 048
     Dates: start: 20101101
  2. TRAZODONE [Concomitant]
     Indication: SLEEP DISORDER
     Dosage: 100 MG, 1X/DAY
     Route: 048
  3. LISINOPRIL [Concomitant]
     Indication: HYPERTENSION
     Dosage: UNK, DAILY
     Route: 048
  4. SEROQUEL [Concomitant]
     Indication: BIPOLAR DISORDER
     Dosage: 600 MG, DAILY
     Route: 048
  5. SEROQUEL [Concomitant]
     Indication: SCHIZOAFFECTIVE DISORDER
  6. SEROQUEL [Concomitant]
     Indication: DELUSION

REACTIONS (3)
  - ANGER [None]
  - DEPRESSION [None]
  - SCHIZOPHRENIA [None]
